FAERS Safety Report 7127394-0 (Version None)
Quarter: 2010Q4

REPORT INFORMATION
  Report Type: 
  Country: None (occurrence: None)
  Receive Date: 20101129
  Receipt Date: 20100523
  Transmission Date: 20110411
  Serious: No
  Sender: FDA-Public Use
  Company Number: US-PFIZER INC-2010065036

PATIENT
  Sex: Female

DRUGS (1)
  1. VIAGRA [Suspect]
     Dosage: 12.5 MG, 3X/DAY
     Dates: start: 20100101

REACTIONS (2)
  - INCORRECT DOSE ADMINISTERED [None]
  - RASH [None]
